FAERS Safety Report 13094192 (Version 1)
Quarter: 2017Q1

REPORT INFORMATION
  Report Type: Spontaneous
  Country: GB (occurrence: GB)
  Receive Date: 20170106
  Receipt Date: 20170106
  Transmission Date: 20170428
  Serious: Yes (Other)
  Sender: FDA-Public Use
  Company Number: PHHY2016GB179619

PATIENT
  Age: 8 Year
  Sex: Female

DRUGS (6)
  1. PROPRANOLOL [Concomitant]
     Active Substance: PROPRANOLOL HYDROCHLORIDE
     Indication: HYPERTHYROIDISM
     Dosage: 10 MG, TID
     Route: 065
  2. METHYLPHENIDATE HYDROCHLORIDE. [Suspect]
     Active Substance: METHYLPHENIDATE HYDROCHLORIDE
     Indication: ATTENTION DEFICIT/HYPERACTIVITY DISORDER
     Route: 065
  3. CARBIMAZOLE [Concomitant]
     Active Substance: CARBIMAZOLE
     Indication: HYPERTHYROIDISM
     Dosage: 3.75 MG, QD
     Route: 065
  4. THYROXINE [Concomitant]
     Active Substance: LEVOTHYROXINE
     Indication: HYPERTHYROIDISM
     Route: 065
  5. CARBIMAZOLE [Concomitant]
     Active Substance: CARBIMAZOLE
     Dosage: 15 MG, QD
     Route: 065
  6. ALFACALCIDOL [Concomitant]
     Active Substance: ALFACALCIDOL
     Indication: HYPOCALCAEMIA
     Route: 065

REACTIONS (3)
  - Therapy non-responder [Unknown]
  - Attention deficit/hyperactivity disorder [Unknown]
  - Condition aggravated [Unknown]
